FAERS Safety Report 5974816-4 (Version None)
Quarter: 2008Q4

REPORT INFORMATION
  Report Type: 
  Country: None (occurrence: None)
  Receive Date: 20081201
  Receipt Date: 20081127
  Transmission Date: 20090506
  Serious: Yes (Other)
  Sender: FDA-Public Use
  Company Number: GB-PFIZER INC-2008100622

PATIENT
  Sex: Male

DRUGS (5)
  1. DOXYCYCLINE [Suspect]
     Indication: ACNE
  2. RAPAMUNE [Suspect]
     Indication: RENAL DISORDER
     Dates: start: 20061001
  3. ATENOLOL [Concomitant]
  4. AZATHIOPRINE [Concomitant]
  5. LOSARTAN POTASSIUM [Concomitant]

REACTIONS (4)
  - ACNE [None]
  - BLOOD CREATINE PHOSPHOKINASE INCREASED [None]
  - MUSCULAR WEAKNESS [None]
  - MYALGIA [None]
